FAERS Safety Report 6291939-3 (Version None)
Quarter: 2009Q3

REPORT INFORMATION
  Report Type: 
  Country: None (occurrence: None)
  Receive Date: 20090729
  Receipt Date: 20090720
  Transmission Date: 20100115
  Serious: Yes (Hospitalization, Other)
  Sender: FDA-Public Use
  Company Number: OSCN-PR-0907L-0328

PATIENT
  Age: 70 Year
  Sex: Male

DRUGS (1)
  1. OMNISCAN [Suspect]
     Indication: LYMPHOCYTIC LEUKAEMIA
     Dosage: SINGLE DOSE
     Dates: start: 20050901, end: 20050901

REACTIONS (5)
  - BLOOD PARATHYROID HORMONE INCREASED [None]
  - HAEMODIALYSIS [None]
  - HYPERCALCAEMIA [None]
  - INTESTINAL INFARCTION [None]
  - NEPHROGENIC SYSTEMIC FIBROSIS [None]
